FAERS Safety Report 10246553 (Version 2)
Quarter: 2014Q2

REPORT INFORMATION
  Report Type: Report from Study
  Country: US (occurrence: US)
  Receive Date: 20140619
  Receipt Date: 20140630
  Transmission Date: 20141212
  Serious: Yes (Other)
  Sender: FDA-Public Use
  Company Number: US-SA-2014SA076942

PATIENT
  Age: 62 Year
  Sex: Female
  Weight: 63.4 kg

DRUGS (22)
  1. AFLIBERCEPT [Suspect]
     Indication: NEOPLASM MALIGNANT
     Route: 041
     Dates: start: 20140121, end: 20140121
  2. AFLIBERCEPT [Suspect]
     Indication: NEOPLASM MALIGNANT
     Route: 041
     Dates: start: 20140515, end: 20140515
  3. SAR307746 [Suspect]
     Indication: NEOPLASM MALIGNANT
     Route: 041
     Dates: start: 20140121, end: 20140121
  4. SAR307746 [Suspect]
     Indication: NEOPLASM MALIGNANT
     Route: 041
     Dates: start: 20140515, end: 20140515
  5. PACLITAXEL [Suspect]
     Indication: NEOPLASM MALIGNANT
     Route: 041
     Dates: start: 20140121, end: 20140121
  6. PACLITAXEL [Suspect]
     Indication: NEOPLASM MALIGNANT
     Route: 041
     Dates: start: 20140515, end: 20140515
  7. PROVIGIL [Concomitant]
     Indication: COGNITIVE DISORDER
     Route: 048
     Dates: start: 2010
  8. FLUOXETINE [Concomitant]
     Indication: DEPRESSION
     Route: 048
     Dates: start: 201302
  9. TYLENOL [Concomitant]
     Indication: HEADACHE
     Route: 048
     Dates: start: 201312
  10. COLACE [Concomitant]
     Indication: CONSTIPATION
     Route: 048
     Dates: start: 2013
  11. ESTER-C [Concomitant]
     Indication: VITAMIN SUPPLEMENTATION
     Route: 048
     Dates: start: 2012
  12. VITAMIN B [Concomitant]
     Indication: VITAMIN SUPPLEMENTATION
     Route: 048
     Dates: start: 2012
  13. MOTRIN [Concomitant]
     Indication: HEADACHE
     Route: 048
     Dates: start: 2013
  14. PROCHLORPERAZINE [Concomitant]
     Indication: VOMITING
     Route: 048
     Dates: start: 2009
  15. NORCO [Concomitant]
     Indication: PAIN
     Dosage: DOSAGE: 5/325MG
     Route: 048
     Dates: start: 20140128
  16. LACTULOSE [Concomitant]
     Indication: CONSTIPATION
     Route: 048
     Dates: start: 20140220
  17. SENOKOT /UNK/ [Concomitant]
     Indication: CONSTIPATION
     Route: 048
     Dates: start: 20140124
  18. SYNTHROID [Concomitant]
     Indication: HYPOTHYROIDISM
     Route: 048
     Dates: start: 20140320
  19. DIPHENHYDRAMINE HYDROCHLORIDE [Concomitant]
     Indication: OROPHARYNGEAL PAIN
     Dates: start: 20140314
  20. MAXZIDE [Concomitant]
     Indication: OEDEMA
     Route: 048
     Dates: start: 20140514
  21. ULTRAM [Concomitant]
     Indication: PAIN
     Route: 048
     Dates: start: 20140520
  22. AMBIEN [Concomitant]
     Indication: INSOMNIA
     Dates: start: 20140511

REACTIONS (1)
  - Left ventricular dysfunction [Not Recovered/Not Resolved]
